FAERS Safety Report 7413477-4 (Version None)
Quarter: 2011Q2

REPORT INFORMATION
  Report Type: 
  Country: None (occurrence: None)
  Receive Date: 20110413
  Receipt Date: 20110404
  Transmission Date: 20111010
  Serious: Yes (Other)
  Sender: FDA-Public Use
  Company Number: PHHY2011DE29979

PATIENT
  Age: 69 Year
  Sex: Female

DRUGS (2)
  1. CERTICAN [Suspect]
     Indication: LIVER TRANSPLANT
     Dosage: 0.75 MG, BID, ONE TAB IN  THE MORNING AND ONE TAB IN THE EVENING
     Route: 048
  2. IBUPROFEN [Concomitant]
     Indication: INTERVERTEBRAL DISC PROTRUSION
     Dosage: UNK
     Route: 048

REACTIONS (2)
  - INTERVERTEBRAL DISC PROTRUSION [None]
  - IMMUNOSUPPRESSANT DRUG LEVEL DECREASED [None]
